FAERS Safety Report 8034259-9 (Version None)
Quarter: 2011Q4

REPORT INFORMATION
  Report Type: 
  Country: None (occurrence: None)
  Receive Date: 20111202
  Receipt Date: 20110727
  Transmission Date: 20120403
  Serious: Yes (Disabling)
  Sender: FDA-Public Use
  Company Number: WAES 1107USA03587

PATIENT
  Sex: Female

DRUGS (4)
  1. BONIVA [Suspect]
     Indication: OSTEOPOROSIS
     Dosage: UNK/UNK/UNK
  2. BONIVA [Suspect]
     Indication: OSTEOPENIA
     Dosage: UNK/UNK/UNK
  3. FOSAMAX [Suspect]
     Indication: OSTEOPENIA
     Dosage: UNK/UNK/PO
     Route: 048
  4. FOSAMAX [Suspect]
     Indication: OSTEOPOROSIS
     Dosage: UNK/UNK/PO
     Route: 048

REACTIONS (1)
  - OSTEONECROSIS OF JAW [None]
